FAERS Safety Report 13433235 (Version 1)
Quarter: 2017Q2

REPORT INFORMATION
  Report Type: Spontaneous
  Country: NL (occurrence: NL)
  Receive Date: 20170412
  Receipt Date: 20170412
  Transmission Date: 20170830
  Serious: Yes (Other)
  Sender: FDA-Public Use
  Company Number: NL-TEVA-756439ACC

PATIENT
  Age: 63 Year
  Sex: Male
  Weight: 87 kg

DRUGS (11)
  1. LACTULOSE STROOP 670MG/ML (500MG/G) [Concomitant]
     Dosage: 30 ML DAILY;
     Route: 048
  2. DICLOFENAC-NATRIUM TABLET MSR 50MG [Concomitant]
     Dosage: AS REQUIRED 1-3 PER DAY 1 TABLET
     Route: 048
  3. MACROGOL/ZOUTEN PDR V DRANK (MOVICOLON+GENERIEK) [Concomitant]
     Dosage: 1 DOSAGE FORMS DAILY;
     Route: 048
  4. NAPROXEN TABLET MSR 250MG [Concomitant]
     Dosage: AS REQUIRED 2 TIMES PER DAY 1-2 TABLETS
     Route: 048
  5. GEMFIBROZIL TABLET 600MG [Concomitant]
     Dosage: 1200 MILLIGRAM DAILY;
     Route: 048
  6. FLIXONASE NEUSDRUPPELS 1MG/ML PATROON 0,4ML [Concomitant]
     Dosage: 1-2 PER DAY 1 DROP IN BOTH NOSTRILS
     Route: 045
  7. METOPROLOL TABLET MGA 100MG (SUCCINAAT) [Concomitant]
     Active Substance: METOPROLOL
     Dosage: 100 MILLIGRAM DAILY;
     Route: 048
  8. ACETYLSALICYLZUUR DISPERTABLET 80MG [Concomitant]
     Active Substance: ASPIRIN
     Dosage: 80 MILLIGRAM DAILY;
     Route: 048
  9. VOLCOLON GRANULAAT 6G IN SACHET [Concomitant]
     Dosage: 6 GRAM DAILY;
     Route: 048
  10. HYDROCHLOROTHIAZIDE. [Suspect]
     Active Substance: HYDROCHLOROTHIAZIDE
     Indication: HYPERTENSION
     Dosage: 12.5 MILLIGRAM DAILY;
     Route: 048
     Dates: start: 20170301, end: 20170313
  11. METFORMIN [Concomitant]
     Active Substance: METFORMIN HYDROCHLORIDE
     Route: 048

REACTIONS (2)
  - Arrhythmia [Recovered/Resolved with Sequelae]
  - Muscle spasms [Recovered/Resolved with Sequelae]

NARRATIVE: CASE EVENT DATE: 20170303
